FAERS Safety Report 4683085-7 (Version None)
Quarter: 2005Q2

REPORT INFORMATION
  Report Type: 
  Country: None (occurrence: None)
  Receive Date: 20050602
  Receipt Date: 20050324
  Transmission Date: 20051028
  Serious: No
  Sender: FDA-Public Use
  Company Number: USA050394068

PATIENT
  Age: 53 Year
  Sex: Female
  Weight: 182 kg

DRUGS (5)
  1. CYMBALTA [Suspect]
     Dosage: 60 MG DAY
     Dates: start: 20050301
  2. NEURONTIN (GABAPENTIN PFIZER) [Concomitant]
  3. TRILEPTAL [Concomitant]
  4. LITHOBID [Concomitant]
  5. AMBIEN [Concomitant]

REACTIONS (4)
  - DISTURBANCE IN ATTENTION [None]
  - MANIA [None]
  - RESTLESSNESS [None]
  - WEIGHT INCREASED [None]
